FAERS Safety Report 6245809-7 (Version None)
Quarter: 2009Q2

REPORT INFORMATION
  Report Type: 
  Country: None (occurrence: None)
  Receive Date: 20090624
  Receipt Date: 20090612
  Transmission Date: 20091009
  Serious: Yes (Other)
  Sender: FDA-Public Use
  Company Number: 236077K09USA

PATIENT
  Age: 47 Year
  Sex: Female

DRUGS (12)
  1. REBIF [Suspect]
     Indication: MULTIPLE SCLEROSIS
     Dosage: 44 MCG, 3 IN 1 WEEKS, SUBCUTANEOUS
     Route: 058
     Dates: start: 20090123, end: 20090413
  2. CELEXA [Suspect]
     Indication: DEPRESSION
     Dates: end: 20090401
  3. GABAPENTIN [Suspect]
     Indication: PAIN
     Dates: end: 20090401
  4. KLONOPIN [Suspect]
     Indication: ANXIETY
     Dates: end: 20090401
  5. KLONOPIN [Suspect]
     Indication: SLEEP DISORDER
     Dates: end: 20090401
  6. CYTOXAN [Suspect]
     Indication: MULTIPLE SCLEROSIS
     Dates: end: 20090401
  7. ACYCLOVIR [Concomitant]
  8. VITAMIN D [Concomitant]
  9. FATTY ACIDS (OMEGA-6 FATTY ACIDS) [Concomitant]
  10. SOLU-MEDROL (METHYLPREDISOLONE SODIUM SUCCINATE) [Concomitant]
  11. MOTRIN [Concomitant]
  12. TYLENOL [Concomitant]

REACTIONS (7)
  - ANTINUCLEAR ANTIBODY INCREASED [None]
  - AUTOIMMUNE HEPATITIS [None]
  - CHROMATURIA [None]
  - CONDITION AGGRAVATED [None]
  - HYPOAESTHESIA [None]
  - NAUSEA [None]
  - PRURITUS [None]
